FAERS Safety Report 6976160-5 (Version None)
Quarter: 2010Q3

REPORT INFORMATION
  Report Type: 
  Country: None (occurrence: None)
  Receive Date: 20100910
  Receipt Date: 20090420
  Transmission Date: 20110219
  Serious: No
  Sender: FDA-Public Use
  Company Number: US-WYE-H09030909

PATIENT
  Sex: Female

DRUGS (4)
  1. PRISTIQ [Suspect]
     Indication: DEPRESSION
     Route: 048
     Dates: start: 20090415
  2. LUNESTA [Concomitant]
  3. ZOCOR [Concomitant]
  4. ZOFRAN [Concomitant]

REACTIONS (4)
  - ANXIETY [None]
  - DRY MOUTH [None]
  - INSOMNIA [None]
  - NAUSEA [None]
